FAERS Safety Report 4556044-2 (Version None)
Quarter: 2005Q1

REPORT INFORMATION
  Report Type: 
  Country: None (occurrence: None)
  Receive Date: 20050119
  Receipt Date: 20040926
  Transmission Date: 20050727
  Serious: Yes (Hospitalization)
  Sender: FDA-Public Use
  Company Number: BE-GLAXOSMITHKLINE-B0346847A

PATIENT
  Age: 35 Year
  Sex: Female

DRUGS (1)
  1. ZYBAN [Suspect]
     Indication: ILL-DEFINED DISORDER
     Route: 048

REACTIONS (7)
  - AGITATION [None]
  - ALCOHOL POISONING [None]
  - CONFUSIONAL STATE [None]
  - DEHYDRATION [None]
  - EXTRAPYRAMIDAL DISORDER [None]
  - OVERDOSE [None]
  - SUICIDE ATTEMPT [None]
